FAERS Safety Report 9300140 (Version 1)
Quarter: 2013Q1

REPORT INFORMATION
  Report Type: Spontaneous
  Country: US (occurrence: None)
  Receive Date: 20121231
  Receipt Date: 20121231
  Transmission Date: 20140127
  Serious: Yes (Hospitalization)
  Sender: FDA-Public Use
  Company Number: RB-44256-2012

PATIENT
  Age: 40 Year
  Sex: Male

DRUGS (1)
  1. SUBOXONE [Suspect]
     Indication: PAIN MANAGEMENT
     Dosage: 16 MG SUBOXONE FILM SUBLINGUAL
     Dates: start: 201206, end: 201208

REACTIONS (2)
  - Off label use [None]
  - Euphoric mood [None]
